FAERS Safety Report 19308004 (Version 1)
Quarter: 2021Q2

REPORT INFORMATION
  Report Type: Spontaneous
  Country: CN (occurrence: CN)
  Receive Date: 20210526
  Receipt Date: 20210526
  Transmission Date: 20210717
  Serious: Yes (Other)
  Sender: FDA-Public Use
  Company Number: CN-ACCORD-225818

PATIENT
  Age: 54 Year
  Sex: Female

DRUGS (10)
  1. PACLITAXEL. [Concomitant]
     Active Substance: PACLITAXEL
     Indication: ADENOSQUAMOUS CARCINOMA OF THE CERVIX
     Dosage: LIPOSOMAL
     Route: 042
     Dates: start: 2018, end: 2018
  2. OXALIPLATIN. [Suspect]
     Active Substance: OXALIPLATIN
     Indication: INVASIVE DUCTAL BREAST CARCINOMA
     Route: 042
     Dates: start: 2018, end: 2018
  3. PACLITAXEL. [Concomitant]
     Active Substance: PACLITAXEL
     Indication: FALLOPIAN TUBE CANCER
     Dosage: LIPOSOMAL
     Route: 042
     Dates: start: 2018, end: 2018
  4. OXALIPLATIN. [Suspect]
     Active Substance: OXALIPLATIN
     Indication: OVARIAN CANCER
     Route: 042
     Dates: start: 2018, end: 2018
  5. PACLITAXEL. [Concomitant]
     Active Substance: PACLITAXEL
     Indication: INVASIVE DUCTAL BREAST CARCINOMA
     Dosage: LIPOSOMAL
     Route: 042
     Dates: start: 2018, end: 2018
  6. REPAGLINIDE. [Concomitant]
     Active Substance: REPAGLINIDE
     Indication: DIABETES MELLITUS
     Route: 048
     Dates: start: 2015
  7. PACLITAXEL. [Concomitant]
     Active Substance: PACLITAXEL
     Indication: OVARIAN CANCER
     Dosage: LIPOSOMAL
     Route: 042
     Dates: start: 2018, end: 2018
  8. OXALIPLATIN. [Suspect]
     Active Substance: OXALIPLATIN
     Indication: FALLOPIAN TUBE CANCER
     Route: 042
     Dates: start: 2018, end: 2018
  9. METFORMIN [Concomitant]
     Active Substance: METFORMIN HYDROCHLORIDE
     Indication: DIABETES MELLITUS
     Route: 048
     Dates: start: 2015
  10. OXALIPLATIN. [Suspect]
     Active Substance: OXALIPLATIN
     Indication: ADENOSQUAMOUS CARCINOMA OF THE CERVIX
     Route: 042
     Dates: start: 2018, end: 2018

REACTIONS (1)
  - Myelosuppression [Unknown]

NARRATIVE: CASE EVENT DATE: 2018
